FAERS Safety Report 7017435-3 (Version None)
Quarter: 2010Q3

REPORT INFORMATION
  Report Type: 
  Country: None (occurrence: None)
  Receive Date: 20100928
  Receipt Date: 20100915
  Transmission Date: 20110219
  Serious: Yes (Hospitalization)
  Sender: FDA-Public Use
  Company Number: PHHY2010CH60693

PATIENT
  Sex: Female

DRUGS (11)
  1. TEGRETOL [Suspect]
     Indication: EPILEPSY
     Dosage: 600 MG, QD
  2. SAROTEN ^BAYER VITAL^ [Suspect]
     Indication: DEPRESSION
     Dosage: 25 MG, QD
  3. ALDOZONE [Suspect]
     Indication: HYPERTENSION
     Dosage: 1 DOSAGE FORM/ DAY
  4. VALIUM [Suspect]
     Dosage: UNK
     Dates: start: 20090323
  5. XANAX [Suspect]
     Dosage: UNK
     Dates: start: 20090323
  6. ASPIRIN [Concomitant]
     Dosage: 100 MG, QD
  7. NEXIUM [Concomitant]
     Dosage: 20 MG, QD
  8. SYMFONA N [Concomitant]
     Dosage: 120 MG, QD
  9. FERRO ^SANOL^ [Concomitant]
     Dosage: 100 MG, QD
  10. MAGNESIOCARD [Concomitant]
     Dosage: 1 DOSAGE FORM PER DAY
  11. PARAGOL [Concomitant]
     Dosage: 20 MG, QD

REACTIONS (13)
  - COMA SCALE ABNORMAL [None]
  - CONFUSIONAL STATE [None]
  - DRUG TOXICITY [None]
  - DYSARTHRIA [None]
  - HYPOCHLORAEMIA [None]
  - HYPONATRAEMIA [None]
  - HYPOTHERMIA [None]
  - INAPPROPRIATE ANTIDIURETIC HORMONE SECRETION [None]
  - INTENTIONAL OVERDOSE [None]
  - SEDATION [None]
  - SUICIDAL IDEATION [None]
  - URINARY RETENTION [None]
  - VOMITING [None]
